FAERS Safety Report 10067877 (Version 1)
Quarter: 2014Q2

REPORT INFORMATION
  Report Type: Spontaneous
  Country: BR (occurrence: BR)
  Receive Date: 20140409
  Receipt Date: 20140409
  Transmission Date: 20141212
  Serious: Yes (Hospitalization, Other)
  Sender: FDA-Public Use
  Company Number: BR-BRISTOL-MYERS SQUIBB COMPANY-20581849

PATIENT
  Age: 72 Year
  Sex: Female
  Weight: 73 kg

DRUGS (7)
  1. SELOZOK [Concomitant]
     Indication: HYPERTENSION
     Dosage: 1 TABLET IN THE MORNING AND 1 TABLET AT NIGHT
  2. SELOZOK [Concomitant]
     Indication: ARRHYTHMIA
     Dosage: 1 TABLET IN THE MORNING AND 1 TABLET AT NIGHT
  3. ANCORON [Concomitant]
     Indication: CARDIAC FIBRILLATION
  4. NORVASC [Concomitant]
     Indication: BLOOD PRESSURE
  5. LORAX [Concomitant]
     Indication: SLEEP DISORDER
  6. LIPITOR [Concomitant]
     Indication: BLOOD CHOLESTEROL ABNORMAL
  7. COUMADIN TABS 2.5 MG [Suspect]

REACTIONS (4)
  - Cardiac disorder [Unknown]
  - Renal haemorrhage [Unknown]
  - Pruritus [Not Recovered/Not Resolved]
  - International normalised ratio fluctuation [Unknown]
